FAERS Safety Report 12445826 (Version 1)
Quarter: 2016Q2

REPORT INFORMATION
  Report Type: Spontaneous
  Country: US (occurrence: US)
  Receive Date: 20160608
  Receipt Date: 20160608
  Transmission Date: 20160815
  Serious: No
  Sender: FDA-Public Use
  Company Number: US-JNJFOC-20160516008

PATIENT
  Age: 88 Year
  Sex: Female
  Weight: 60.78 kg

DRUGS (2)
  1. TYLENOL 8 HR ARTHRITIS PAIN [Suspect]
     Active Substance: ACETAMINOPHEN
     Route: 048
  2. TYLENOL 8 HR ARTHRITIS PAIN [Suspect]
     Active Substance: ACETAMINOPHEN
     Indication: NEURALGIA
     Dosage: TWO CAPLETS ONE TO TWO TIMES A DAY.
     Route: 048

REACTIONS (3)
  - Somnolence [Recovered/Resolved]
  - Inappropriate schedule of drug administration [Recovered/Resolved]
  - Fatigue [Recovered/Resolved]
